FAERS Safety Report 11522613 (Version 1)
Quarter: 2015Q3

REPORT INFORMATION
  Report Type: Spontaneous
  Country: US (occurrence: US)
  Receive Date: 20150918
  Receipt Date: 20150918
  Transmission Date: 20151125
  Serious: No
  Sender: FDA-Public Use
  Company Number: US-ROCHE-732667

PATIENT
  Age: 41 Year
  Sex: Female

DRUGS (5)
  1. PEGASYS [Suspect]
     Active Substance: PEGINTERFERON ALFA-2A
     Indication: HEPATITIS C
     Dosage: FORM: PRE FILLED SYRINGE
     Route: 058
  2. DIFLUCAN [Suspect]
     Active Substance: FLUCONAZOLE
     Indication: VULVOVAGINAL MYCOTIC INFECTION
     Route: 065
  3. RIBAVIRIN. [Suspect]
     Active Substance: RIBAVIRIN
     Indication: HEPATITIS C
     Dosage: FORM: PILL, DIVIDED DOSES
     Route: 048
  4. DIFLUCAN [Suspect]
     Active Substance: FLUCONAZOLE
     Dosage: DRUG STARTED AGAIN
     Route: 065
  5. LAMICTAL [Concomitant]
     Active Substance: LAMOTRIGINE
     Indication: BIPOLAR DISORDER
     Route: 065

REACTIONS (14)
  - Upper-airway cough syndrome [Not Recovered/Not Resolved]
  - Chromaturia [Not Recovered/Not Resolved]
  - Decreased appetite [Not Recovered/Not Resolved]
  - Eczema [Not Recovered/Not Resolved]
  - Oropharyngeal pain [Recovered/Resolved]
  - Thirst decreased [Not Recovered/Not Resolved]
  - Infection [Recovered/Resolved]
  - Urticaria [Not Recovered/Not Resolved]
  - Anger [Not Recovered/Not Resolved]
  - Vulvovaginal mycotic infection [Unknown]
  - Pyrexia [Recovering/Resolving]
  - Dyspnoea [Not Recovered/Not Resolved]
  - Nausea [Recovering/Resolving]
  - Vomiting [Unknown]

NARRATIVE: CASE EVENT DATE: 20101008
